FAERS Safety Report 4341764-5 (Version None)
Quarter: 2004Q2

REPORT INFORMATION
  Report Type: 
  Country: None (occurrence: None)
  Receive Date: 20040415
  Receipt Date: 20040401
  Transmission Date: 20050107
  Serious: Yes (Hospitalization)
  Sender: FDA-Public Use
  Company Number: GBR-2004-0000970

PATIENT
  Age: 79 Year
  Sex: Male

DRUGS (10)
  1. MORPHINE SULFATE [Suspect]
     Dosage: 10 MG, ORAL
     Route: 048
     Dates: start: 20040218, end: 20040220
  2. DURAGESIC [Suspect]
     Dosage: 50 MCG/HR, TOPICAL
     Route: 061
     Dates: start: 20040218, end: 20040220
  3. CIPRALAN [Concomitant]
  4. CELECTOL [Concomitant]
  5. PRESTOLE (TRIAMTERENE, HYDROCHLOROTHIAZIDE) [Concomitant]
  6. RAMIPRIL [Concomitant]
  7. ACETAMINOPHEN [Concomitant]
  8. OMEPRAZOLE [Concomitant]
  9. ALLOPURINOL [Concomitant]
  10. LORAZEPAM [Concomitant]

REACTIONS (18)
  - ARTHROPATHY [None]
  - BLADDER DISTENSION [None]
  - BLOOD ALBUMIN DECREASED [None]
  - BLOOD CALCIUM DECREASED [None]
  - BLOOD PRESSURE SYSTOLIC INCREASED [None]
  - CARDIAC MURMUR [None]
  - CONFUSIONAL STATE [None]
  - CONSTIPATION [None]
  - DISTURBANCE IN ATTENTION [None]
  - FALL [None]
  - HAEMOGLOBIN DECREASED [None]
  - OEDEMA PERIPHERAL [None]
  - OVERDOSE [None]
  - PITTING OEDEMA [None]
  - PLATELET COUNT INCREASED [None]
  - RENAL IMPAIRMENT [None]
  - SOMNOLENCE [None]
  - WHITE BLOOD CELL COUNT INCREASED [None]
